FAERS Safety Report 13429496 (Version 1)
Quarter: 2017Q2

REPORT INFORMATION
  Report Type: Spontaneous
  Country: US (occurrence: US)
  Receive Date: 20170411
  Receipt Date: 20170411
  Transmission Date: 20170830
  Serious: No
  Sender: FDA-Public Use
  Company Number: US-ALLERGAN-1701045US

PATIENT
  Age: 91 Year
  Sex: Female
  Weight: 49.89 kg

DRUGS (4)
  1. LEVOTHYROXINE. [Concomitant]
     Active Substance: LEVOTHYROXINE
     Indication: HYPOTHYROIDISM
     Dosage: UNK
  2. PRAVASTATIN. [Concomitant]
     Active Substance: PRAVASTATIN
     Indication: BLOOD CHOLESTEROL INCREASED
     Dosage: UNK
  3. BABY ASPIRIN [Concomitant]
     Active Substance: ASPIRIN
     Dosage: UNK
  4. NAMZARIC [Suspect]
     Active Substance: DONEPEZIL HYDROCHLORIDE\MEMANTINE HYDROCHLORIDE
     Indication: DEMENTIA
     Dosage: 10/14
     Route: 048
     Dates: start: 201606

REACTIONS (5)
  - Hallucination [Not Recovered/Not Resolved]
  - Disorientation [Not Recovered/Not Resolved]
  - Insomnia [Not Recovered/Not Resolved]
  - Crying [Not Recovered/Not Resolved]
  - Drug dose omission [Unknown]

NARRATIVE: CASE EVENT DATE: 201701
